FAERS Safety Report 17272388 (Version 1)
Quarter: 2020Q1

REPORT INFORMATION
  Report Type: Spontaneous
  Country: CA (occurrence: CA)
  Receive Date: 20200115
  Receipt Date: 20200115
  Transmission Date: 20200409
  Serious: Yes (Hospitalization)
  Sender: FDA-Public Use
  Company Number: CA-CELLTRION-2020-CA-000046

PATIENT
  Age: 7 Year
  Sex: Male

DRUGS (1)
  1. RISPERIDONE (NON-SPECIFIC) [Suspect]
     Active Substance: RISPERIDONE
     Indication: ATTENTION DEFICIT/HYPERACTIVITY DISORDER
     Dosage: INITIALLY 0.25 MG/DAY INCREASED TO 0.5 MG/DAY WITHIN A WEEK

REACTIONS (1)
  - Serum sickness-like reaction [Recovered/Resolved]
